FAERS Safety Report 7341509-0 (Version None)
Quarter: 2011Q1

REPORT INFORMATION
  Report Type: 
  Country: None (occurrence: None)
  Receive Date: 20110309
  Receipt Date: 20110304
  Transmission Date: 20110831
  Serious: No
  Sender: FDA-Public Use
  Company Number: US-TEVA-270114USA

PATIENT
  Sex: Female
  Weight: 68.1 kg

DRUGS (8)
  1. LAMICTAL [Concomitant]
     Indication: LENNOX-GASTAUT SYNDROME
  2. NORTRIPTYLINE [Concomitant]
     Indication: LENNOX-GASTAUT SYNDROME
  3. GABAPENTIN [Concomitant]
     Indication: LENNOX-GASTAUT SYNDROME
  4. TOPAMAX [Concomitant]
     Indication: LENNOX-GASTAUT SYNDROME
  5. NORTRIPTYLINE [Concomitant]
     Indication: MULTIPLE SCLEROSIS
  6. PLAN B ONE-STEP [Suspect]
     Indication: POST COITAL CONTRACEPTION
     Route: 048
     Dates: start: 20110123, end: 20110123
  7. OPANA ER [Concomitant]
     Indication: MULTIPLE SCLEROSIS
  8. METHOCARBAMOL [Concomitant]
     Indication: LENNOX-GASTAUT SYNDROME

REACTIONS (1)
  - MENSTRUATION DELAYED [None]
